FAERS Safety Report 5578174-9 (Version None)
Quarter: 2007Q4

REPORT INFORMATION
  Report Type: 
  Country: None (occurrence: None)
  Receive Date: 20071231
  Receipt Date: 20071220
  Transmission Date: 20080405
  Serious: Yes (Hospitalization, Other)
  Sender: FDA-Public Use
  Company Number: US-PFIZER INC-2007107381

PATIENT
  Sex: Female
  Weight: 58.5 kg

DRUGS (6)
  1. XANAX [Suspect]
     Indication: DEPRESSION
     Route: 048
  2. XANAX [Suspect]
  3. LIPITOR [Suspect]
     Dosage: DAILY DOSE:10MG
  4. OXYCONTIN [Concomitant]
  5. OXYCODONE HCL [Concomitant]
  6. ZELNORM [Concomitant]

REACTIONS (5)
  - DECREASED APPETITE [None]
  - GASTROINTESTINAL DISORDER [None]
  - GENITAL DISORDER FEMALE [None]
  - INTESTINAL OBSTRUCTION [None]
  - TRANSIENT ISCHAEMIC ATTACK [None]
